FAERS Safety Report 14937865 (Version 3)
Quarter: 2020Q1

REPORT INFORMATION
  Report Type: Report from Study
  Country: CA (occurrence: CA)
  Receive Date: 20180525
  Receipt Date: 20200319
  Transmission Date: 20200409
  Serious: Yes (Hospitalization)
  Sender: FDA-Public Use
  Company Number: CA-ROCHE-2128017

PATIENT
  Age: 66 Year
  Sex: Female

DRUGS (14)
  1. CLONAZEPAM. [Concomitant]
     Active Substance: CLONAZEPAM
     Route: 065
  2. BISOPROLOL [Concomitant]
     Active Substance: BISOPROLOL
  3. DERMAFLEX HC [Concomitant]
  4. METONIA [Concomitant]
     Active Substance: METOCLOPRAMIDE
  5. OXYNEO [Concomitant]
     Active Substance: OXYCODONE
  6. SENNOKOTT [Concomitant]
  7. QUETIAPINE. [Concomitant]
     Active Substance: QUETIAPINE
  8. LOPERAMIDE [Concomitant]
     Active Substance: LOPERAMIDE
  9. RIVASA [Concomitant]
     Active Substance: ASPIRIN
  10. ALECENSARO [Suspect]
     Active Substance: ALECTINIB
     Indication: ADENOCARCINOMA
     Dosage: START DATE: 11/MAY/2018
     Route: 048
  11. ALECENSARO [Suspect]
     Active Substance: ALECTINIB
     Dosage: DOSE REDUCED
     Route: 048
  12. RELAXA [MACROGOL 3350] [Concomitant]
  13. ESOMEPRAZOLE. [Concomitant]
     Active Substance: ESOMEPRAZOLE MAGNESIUM
  14. CARBOCAL [Concomitant]
     Active Substance: CALCIUM CARBONATE

REACTIONS (5)
  - Drug hypersensitivity [Unknown]
  - Fatigue [Not Recovered/Not Resolved]
  - Fatigue [Unknown]
  - Asthenia [Unknown]
  - Loss of consciousness [Unknown]

NARRATIVE: CASE EVENT DATE: 201805
